FAERS Safety Report 25685502 (Version 1)
Quarter: 2025Q3

REPORT INFORMATION
  Report Type: Spontaneous
  Country: US (occurrence: US)
  Receive Date: 20250815
  Receipt Date: 20250815
  Transmission Date: 20251020
  Serious: No
  Sender: BAYER HEALTHCARE PHARMACEUTICALS INC.
  Company Number: US-BAYER-2025A107401

PATIENT
  Sex: Female

DRUGS (1)
  1. KYLEENA [Suspect]
     Active Substance: LEVONORGESTREL
     Dosage: 17.5?G/DAY
     Route: 015

REACTIONS (6)
  - Hair growth abnormal [None]
  - Ovarian cyst [None]
  - Vaginal haemorrhage [None]
  - Menstruation irregular [None]
  - Abdominal pain lower [None]
  - Weight decreased [None]
